FAERS Safety Report 6084294-5 (Version None)
Quarter: 2009Q1

REPORT INFORMATION
  Report Type: 
  Country: None (occurrence: None)
  Receive Date: 20090217
  Receipt Date: 20090204
  Transmission Date: 20090719
  Serious: Yes (Hospitalization)
  Sender: FDA-Public Use
  Company Number: US025429

PATIENT
  Age: 58 Year
  Sex: Female
  Weight: 72.5755 kg

DRUGS (5)
  1. OTFC [Suspect]
     Indication: BACK PAIN
     Dosage: 1600 UG QID BUCCAL
     Route: 002
     Dates: start: 20080101, end: 20090203
  2. ADVAIR HFA [Concomitant]
  3. LIPITOR [Concomitant]
  4. CYCLOBENZAPRINE [Concomitant]
  5. KADIAN [Concomitant]

REACTIONS (3)
  - ABDOMINAL PAIN UPPER [None]
  - NAUSEA [None]
  - VOMITING [None]
